FAERS Safety Report 8540427 (Version 7)
Quarter: 2013Q3

REPORT INFORMATION
  Report Type: Report from Study
  Country: US (occurrence: US)
  Receive Date: 20120315
  Receipt Date: 20130826
  Transmission Date: 20140515
  Serious: Yes (Other)
  Sender: FDA-Public Use
  Company Number: PHHY2011US26506

PATIENT
  Age: 53 Year
  Sex: Female

DRUGS (12)
  1. GILENYA [Suspect]
     Indication: MULTIPLE SCLEROSIS
     Dosage: 0.5 MG, QD
     Route: 048
     Dates: start: 20110110, end: 20110325
  2. DEPAKOTE [Concomitant]
     Dosage: 1 DF, QD
     Route: 048
  3. METOPROLOL TARTRATE [Concomitant]
     Dosage: 1 DF, BID
     Route: 048
  4. ALPRAZOLAM [Concomitant]
     Dosage: 1 DF, QD
     Route: 048
  5. PRILOSEC [Concomitant]
     Dosage: 1 DF, QD
     Route: 048
  6. ZOCOR [Concomitant]
     Dosage: 1 DF, QD
     Route: 048
  7. BABY ASPIRIN [Concomitant]
     Dosage: 1 DF, QD
     Route: 048
  8. ACETAMINOPHEN W/OXYCODONE [Concomitant]
     Dosage: 1 DF, BID
     Route: 048
  9. XANAX [Concomitant]
     Dosage: 0.5 MG, Q8H
  10. SELENIUM [Concomitant]
     Dates: start: 20110112
  11. VERAPAMIL [Concomitant]
  12. PROTONIX [Concomitant]

REACTIONS (19)
  - Progressive multiple sclerosis [Unknown]
  - Central nervous system lesion [Unknown]
  - Gait disturbance [Unknown]
  - General physical health deterioration [Unknown]
  - Visual impairment [Unknown]
  - Cognitive disorder [Unknown]
  - Sensory disturbance [Unknown]
  - Muscle spasticity [Unknown]
  - Coordination abnormal [Unknown]
  - Tremor [Unknown]
  - Fatigue [Unknown]
  - Depression [Unknown]
  - Back pain [Unknown]
  - Musculoskeletal stiffness [Unknown]
  - Chills [Unknown]
  - Neck pain [Not Recovered/Not Resolved]
  - Burning sensation [Unknown]
  - Weight increased [Unknown]
  - Pain [Unknown]
